FAERS Safety Report 4695524-6 (Version None)
Quarter: 2005Q2

REPORT INFORMATION
  Report Type: 
  Country: None (occurrence: None)
  Receive Date: 20050620
  Receipt Date: 20050620
  Transmission Date: 20051028
  Serious: No
  Sender: FDA-Public Use
  Company Number: None

PATIENT
  Age: 85 Year
  Sex: Female
  Weight: 81.6475 kg

DRUGS (1)
  1. LISINOPRIL [Suspect]
     Indication: HYPERTENSION
     Dosage: 10MG   DAILY   ORAL
     Route: 048
     Dates: start: 20050414, end: 20050514

REACTIONS (2)
  - BLOOD PRESSURE SYSTOLIC INCREASED [None]
  - PHARMACEUTICAL PRODUCT COMPLAINT [None]
